FAERS Safety Report 15192749 (Version 3)
Quarter: 2018Q3

REPORT INFORMATION
  Report Type: Spontaneous
  Country: JP (occurrence: JP)
  Receive Date: 20180725
  Receipt Date: 20180815
  Transmission Date: 20181010
  Serious: Yes (Death, Other)
  Sender: FDA-Public Use
  Company Number: JP-009507513-1806JPN001601J

PATIENT
  Age: 81 Year
  Sex: Male
  Weight: 50 kg

DRUGS (7)
  1. COLINACOL [Concomitant]
     Indication: CONJUNCTIVITIS
     Dosage: 1 GTT, TID
     Route: 047
     Dates: end: 20180322
  2. KEYTRUDA [Suspect]
     Active Substance: PEMBROLIZUMAB
     Indication: LUNG ADENOCARCINOMA
     Dosage: 200 MG, Q3W
     Route: 041
     Dates: start: 20170907, end: 20170907
  3. FLIVAS [Concomitant]
     Active Substance: NAFTOPIDIL
     Indication: BENIGN PROSTATIC HYPERPLASIA
     Dosage: 25 MG, QD
     Route: 048
     Dates: end: 20180322
  4. HUSTAZOL [Concomitant]
     Active Substance: CLOPERASTINE
     Indication: COUGH
     Dosage: 10 MG, TID
     Route: 048
     Dates: start: 20170707, end: 20180322
  5. CARBAZOCHROME SODIUM SULFONATE [Concomitant]
     Active Substance: CARBAZOCHROME SODIUM SULFONATE
     Indication: HAEMOPTYSIS
     Dosage: 30 MG, TID
     Route: 048
     Dates: start: 20170707, end: 20171114
  6. URIEF [Concomitant]
     Active Substance: SILODOSIN
     Indication: BENIGN PROSTATIC HYPERPLASIA
     Dosage: 4 MG, QD
     Route: 048
     Dates: end: 20180322
  7. KARY UNI [Concomitant]
     Active Substance: PIRENOXINE
     Indication: CATARACT
     Dosage: 1 GTT, QID
     Route: 047
     Dates: end: 20180322

REACTIONS (2)
  - Malignant neoplasm progression [Fatal]
  - Interstitial lung disease [Recovering/Resolving]

NARRATIVE: CASE EVENT DATE: 20170925
